FAERS Safety Report 9434161 (Version 1)
Quarter: 2013Q3

REPORT INFORMATION
  Report Type: Spontaneous
  Country: US (occurrence: None)
  Receive Date: 20130730
  Receipt Date: 20130730
  Transmission Date: 20140515
  Serious: Yes (Disabling)
  Sender: FDA-Public Use
  Company Number: None

PATIENT
  Age: 60 Year
  Sex: Male

DRUGS (1)
  1. METFORMIN [Suspect]
     Indication: DIABETES MELLITUS
     Dates: start: 19980110, end: 20100801

REACTIONS (3)
  - Vitamin B12 deficiency [None]
  - Neuropathy peripheral [None]
  - Neuropathic arthropathy [None]
